FAERS Safety Report 5829141-9 (Version None)
Quarter: 2008Q3

REPORT INFORMATION
  Report Type: 
  Country: None (occurrence: None)
  Receive Date: 20080731
  Receipt Date: 20080728
  Transmission Date: 20090109
  Serious: Yes (Hospitalization)
  Sender: FDA-Public Use
  Company Number: GR-WYE-G01931208

PATIENT
  Age: 61 Year
  Sex: Female
  Weight: 55 kg

DRUGS (4)
  1. EFFEXOR XR [Suspect]
     Indication: BIPOLAR DISORDER
     Dosage: 150MG TO 225 MG (MODUS UNSPECIFIED)
     Route: 048
     Dates: start: 20051201, end: 20070401
  2. EFFEXOR XR [Suspect]
     Indication: DEPRESSION
  3. LIPITOR [Concomitant]
     Indication: HYPERLIPIDAEMIA
     Dosage: ONCE WEEKLY
  4. LEXOTANIL [Concomitant]

REACTIONS (3)
  - ABDOMINAL PAIN [None]
  - PANCREATITIS ACUTE [None]
  - TRANSAMINASES INCREASED [None]
